FAERS Safety Report 11054682 (Version 1)
Quarter: 2015Q2

REPORT INFORMATION
  Report Type: Spontaneous
  Country: US (occurrence: None)
  Receive Date: 20150421
  Receipt Date: 20150421
  Transmission Date: 20150821
  Serious: Yes (Hospitalization)
  Sender: FDA-Public Use
  Company Number: None

PATIENT
  Age: 74 Year
  Sex: Male
  Weight: 79.38 kg

DRUGS (9)
  1. BUSPAR [Concomitant]
     Active Substance: BUSPIRONE HYDROCHLORIDE
  2. WELLBUTRIN [Concomitant]
     Active Substance: BUPROPION HYDROCHLORIDE
  3. CIPRO [Suspect]
     Active Substance: CIPROFLOXACIN HYDROCHLORIDE
     Indication: EMPHYSEMA
     Dosage: 2 -- TAKEN BY MOUTH
     Route: 048
     Dates: start: 20150325, end: 20150415
  4. MULTIVITAMINS [Concomitant]
     Active Substance: VITAMINS
  5. TYLENOL [Concomitant]
     Active Substance: ACETAMINOPHEN
  6. ALBUTEROL INHALER [Concomitant]
     Active Substance: ALBUTEROL
  7. LEVOFLOXACIN. [Suspect]
     Active Substance: LEVOFLOXACIN
  8. PREDNISONE. [Concomitant]
     Active Substance: PREDNISONE
  9. SPIRIVA [Concomitant]
     Active Substance: TIOTROPIUM BROMIDE MONOHYDRATE

REACTIONS (9)
  - Tendon pain [None]
  - Headache [None]
  - Musculoskeletal pain [None]
  - Gait disturbance [None]
  - Asthenia [None]
  - Dyspnoea [None]
  - Oxygen saturation decreased [None]
  - Panic attack [None]
  - Nausea [None]

NARRATIVE: CASE EVENT DATE: 20150325
